FAERS Safety Report 5840825-9 (Version None)
Quarter: 2008Q3

REPORT INFORMATION
  Report Type: 
  Country: None (occurrence: None)
  Receive Date: 20080811
  Receipt Date: 20080424
  Transmission Date: 20090109
  Serious: No
  Sender: FDA-Public Use
  Company Number: US-BOEHRINGER INGELHEIM GMBH, GERMANY-2007-BP-16761BP

PATIENT
  Sex: Female
  Weight: 125 kg

DRUGS (4)
  1. MIRAPEX [Suspect]
     Indication: RESTLESS LEGS SYNDROME
     Dosage: PER LEGAL: 1.5 DAILY DOSE ( PER MEDICAL RECORDS: 1.25 MG DAILY AT NIGHT)
     Dates: start: 19980622, end: 20070101
  2. LASIX [Concomitant]
     Dates: start: 20020101
  3. POTASSIUM SUPPLEMENT [Concomitant]
     Dates: start: 20020101
  4. PROZAC [Concomitant]
     Dates: start: 19991001

REACTIONS (8)
  - ANXIETY [None]
  - COMPULSIVE SHOPPING [None]
  - DEPRESSION [None]
  - EMOTIONAL DISTRESS [None]
  - FEAR [None]
  - PAIN [None]
  - PATHOLOGICAL GAMBLING [None]
  - STRESS [None]
